FAERS Safety Report 4835947-5 (Version None)
Quarter: 2005Q4

REPORT INFORMATION
  Report Type: 
  Country: None (occurrence: None)
  Receive Date: 20051118
  Receipt Date: 20051110
  Transmission Date: 20060501
  Serious: Yes (Life-Threatening, Hospitalization)
  Sender: FDA-Public Use
  Company Number: ST-2005-008620

PATIENT
  Age: 80 Year
  Sex: Female
  Weight: 51 kg

DRUGS (6)
  1. OLMETEC [Suspect]
     Indication: HYPERTENSION
     Dosage: 20 MG QD PO
     Route: 048
     Dates: start: 20050704
  2. BASEN [Suspect]
     Indication: DIABETES MELLITUS
     Dosage: 0.2 MG TID PO
     Route: 048
     Dates: start: 20040709, end: 20050913
  3. NORVASC [Concomitant]
  4. GLYBURIDE [Concomitant]
  5. SYAKUYAKUKANZOTO [Concomitant]
  6. HYPEN [Concomitant]

REACTIONS (3)
  - COMA [None]
  - HYPERHIDROSIS [None]
  - HYPOGLYCAEMIA [None]
